FAERS Safety Report 24339411 (Version 1)
Quarter: 2024Q3

REPORT INFORMATION
  Report Type: Spontaneous
  Country: RO (occurrence: RO)
  Receive Date: 20240919
  Receipt Date: 20240919
  Transmission Date: 20241017
  Serious: Yes (Other)
  Sender: AZURITY PHARMACEUTICALS
  Company Number: RO-AZURITY PHARMACEUTICALS, INC.-AZR202409-000615

PATIENT
  Age: 11 Year
  Sex: Male

DRUGS (7)
  1. IVERMECTIN [Suspect]
     Active Substance: IVERMECTIN
     Indication: Acarodermatitis
     Dosage: 6 MILLIGRAM, UNK ((6 MG/DOSE) IN TWO DOSES ONE WEEK APART)
     Route: 048
  2. SULFUR [Suspect]
     Active Substance: SULFUR
     Indication: Acarodermatitis
     Dosage: UNK
     Route: 065
  3. BENZYL BENZOATE [Suspect]
     Active Substance: BENZYL BENZOATE
     Indication: Acarodermatitis
     Dosage: UNK
     Route: 065
  4. MEROPENEM [Concomitant]
     Active Substance: MEROPENEM
     Indication: Skin lesion
     Dosage: UNK (FOR 10 DAYS)
     Route: 065
  5. MIDAZOLAM [Concomitant]
     Active Substance: MIDAZOLAM
     Indication: Seizure
     Dosage: UNK
     Route: 042
  6. LEVETIRACETAM [Concomitant]
     Active Substance: LEVETIRACETAM
     Indication: Seizure
     Dosage: UNK
     Route: 048
  7. DEXAMETHASONE [Concomitant]
     Active Substance: DEXAMETHASONE
     Indication: Seizure
     Dosage: UNK
     Route: 065

REACTIONS (1)
  - Nephropathy toxic [Recovered/Resolved]
